FAERS Safety Report 9187689 (Version 1)
Quarter: 2013Q1

REPORT INFORMATION
  Report Type: Spontaneous
  Country: JP (occurrence: JP)
  Receive Date: 20130325
  Receipt Date: 20130325
  Transmission Date: 20140127
  Serious: Yes (Hospitalization)
  Sender: FDA-Public Use
  Company Number: JP-ASTELLAS-2013JP004093

PATIENT
  Age: 65 Year
  Sex: Female
  Weight: 50.5 kg

DRUGS (26)
  1. FLOMOX [Concomitant]
     Indication: ECZEMA ASTEATOTIC
     Dosage: 100 MG, TID
     Route: 048
     Dates: start: 20120411
  2. MOHRUS [Concomitant]
     Indication: INTERVERTEBRAL DISC PROTRUSION
     Dosage: 20 MG, UID/QD
     Route: 061
     Dates: start: 19921210
  3. CONIEL [Concomitant]
     Indication: HYPERTENSION
     Dosage: 2 MG, UID/QD
     Route: 048
     Dates: start: 20120426
  4. PANTOSIN [Concomitant]
     Indication: CONSTIPATION
     Dosage: 1 G, BID
     Route: 065
     Dates: start: 20120507
  5. MAGNESIUM OXIDE [Concomitant]
     Indication: CONSTIPATION
     Dosage: 0.6 G, BID
     Route: 048
     Dates: start: 20120507
  6. VESICARE [Suspect]
     Indication: NEUROGENIC BLADDER
     Dosage: 5 MG, UID/QD
     Route: 048
     Dates: start: 20101117
  7. LIPITOR [Suspect]
     Indication: HYPERCHOLESTEROLAEMIA
     Dosage: 20 MG, UID/QD
     Route: 048
     Dates: start: 20060123
  8. CELECOX [Suspect]
     Indication: INTERVERTEBRAL DISC PROTRUSION
     Dosage: 100 MG, PRN
     Route: 048
     Dates: start: 20110706
  9. SELARA [Concomitant]
     Indication: CARDIAC FAILURE CHRONIC
     Dosage: 25 MG, QOD
     Route: 048
     Dates: start: 20111110, end: 20111208
  10. SELARA [Concomitant]
     Dosage: 25 MG, UID/QD
     Route: 048
     Dates: start: 20111209
  11. COVERSIL [Concomitant]
     Indication: CARDIAC FAILURE CHRONIC
     Dosage: 4 MG, UID/QD
     Route: 048
     Dates: start: 20120809
  12. ARTIST [Concomitant]
     Indication: CARDIAC FAILURE CHRONIC
     Dosage: 2.5 MG, BID
     Route: 048
     Dates: start: 20120206
  13. LASIX                              /00032601/ [Concomitant]
     Indication: CARDIAC FAILURE CHRONIC
     Dosage: 20 MG, UID/QD
     Route: 048
     Dates: start: 20060110
  14. ANCARON [Concomitant]
     Indication: VENTRICULAR TACHYCARDIA
     Dosage: 100 MG, UID/QD
     Route: 048
     Dates: start: 20060111
  15. ZETIA [Concomitant]
     Indication: HYPERCHOLESTEROLAEMIA
     Dosage: 10 MG, UID/QD
     Route: 048
     Dates: start: 20080924
  16. OPALMON [Concomitant]
     Indication: INTERVERTEBRAL DISC PROTRUSION
     Dosage: 5 UG, TID
     Route: 048
     Dates: start: 20031024, end: 20130306
  17. PARIET [Concomitant]
     Indication: PROPHYLAXIS AGAINST GASTROINTESTINAL ULCER
     Dosage: 10 MG, UID/QD
     Route: 048
     Dates: start: 20060210
  18. DEPAS [Concomitant]
     Indication: PSYCHOSOMATIC DISEASE
     Dosage: 1 MG, BID
     Route: 048
     Dates: start: 20020419
  19. SELBEX [Concomitant]
     Indication: PROPHYLAXIS AGAINST GASTROINTESTINAL ULCER
     Dosage: 50 MG, UID/QD
     Route: 048
     Dates: start: 19971107
  20. NEUROTROPIN                        /06251301/ [Concomitant]
     Indication: INTERVERTEBRAL DISC PROTRUSION
     Dosage: 8 IU, BID
     Route: 048
     Dates: start: 20000609
  21. MYONAL                             /00287502/ [Concomitant]
     Indication: INTERVERTEBRAL DISC PROTRUSION
     Dosage: 50 MG, BID
     Route: 048
     Dates: start: 20010209
  22. TOFRANIL [Concomitant]
     Indication: NEUROGENIC BLADDER
     Dosage: 25 MG, UID/QD
     Route: 048
     Dates: start: 20110707
  23. URINORM [Concomitant]
     Indication: HYPERURICAEMIA
     Dosage: 50 MG, UID/QD
     Route: 048
     Dates: start: 19970328
  24. LOXONIN [Concomitant]
     Indication: INTERVERTEBRAL DISC PROTRUSION
     Dosage: 60 MG, BID
     Route: 048
     Dates: start: 20081205
  25. MUCOSTA [Concomitant]
     Indication: PROPHYLAXIS AGAINST GASTROINTESTINAL ULCER
     Dosage: 100 MG, BID
     Route: 048
     Dates: start: 20111116
  26. LOXONIN [Concomitant]
     Indication: INTERVERTEBRAL DISC PROTRUSION
     Dosage: 100 MG, UID/QD
     Route: 061
     Dates: start: 20090109

REACTIONS (2)
  - Chest X-ray abnormal [Not Recovered/Not Resolved]
  - Off label use [Unknown]
